FAERS Safety Report 11074315 (Version 2)
Quarter: 2015Q2

REPORT INFORMATION
  Report Type: Spontaneous
  Country: US (occurrence: US)
  Receive Date: 20150428
  Receipt Date: 20150622
  Transmission Date: 20150821
  Serious: Yes (Hospitalization, Other)
  Sender: FDA-Public Use
  Company Number: US-GLAXOSMITHKLINE-US2015054270

PATIENT
  Age: 75 Year
  Sex: Female

DRUGS (4)
  1. SPIRIVA [Concomitant]
     Active Substance: TIOTROPIUM BROMIDE MONOHYDRATE
  2. PROAIR HFA [Concomitant]
     Active Substance: ALBUTEROL SULFATE
  3. ADVAIR DISKUS [Suspect]
     Active Substance: FLUTICASONE PROPIONATE\SALMETEROL XINAFOATE
     Indication: ASTHMA
     Dosage: 500/50
     Route: 055
  4. ADVAIR DISKUS [Suspect]
     Active Substance: FLUTICASONE PROPIONATE\SALMETEROL XINAFOATE
     Indication: CHRONIC OBSTRUCTIVE PULMONARY DISEASE

REACTIONS (14)
  - Renal cancer stage IV [Unknown]
  - Gait disturbance [Unknown]
  - Candida infection [Unknown]
  - Chronic obstructive pulmonary disease [Unknown]
  - Expired product administered [Unknown]
  - Dyspnoea [Recovered/Resolved]
  - Asthma [Unknown]
  - Product quality issue [Unknown]
  - Oxygen saturation decreased [Unknown]
  - Drug ineffective [Unknown]
  - Pneumonia [Unknown]
  - Heart rate increased [Recovered/Resolved]
  - Oxygen supplementation [Unknown]
  - Hypertension [Unknown]

NARRATIVE: CASE EVENT DATE: 2012
